FAERS Safety Report 15157927 (Version 4)
Quarter: 2021Q2

REPORT INFORMATION
  Report Type: Other
  Country: IT (occurrence: IT)
  Receive Date: 20180718
  Receipt Date: 20210424
  Transmission Date: 20210716
  Serious: Yes (Hospitalization, Other)
  Sender: FDA-Public Use
  Company Number: IT-MACLEODS PHARMACEUTICALS US LTD-MAC2018013776

PATIENT

DRUGS (21)
  1. GLIPIZIDE. [Interacting]
     Active Substance: GLIPIZIDE
     Dosage: UNK
     Route: 065
  2. ROSUVASTATIN. [Interacting]
     Active Substance: ROSUVASTATIN
     Indication: PRODUCT USED FOR UNKNOWN INDICATION
     Dosage: UNK, TABLET
     Route: 048
  3. INSULIN [Interacting]
     Active Substance: INSULIN NOS
     Indication: PRODUCT USED FOR UNKNOWN INDICATION
     Dosage: UNK
     Route: 065
  4. LISINOPRIL. [Interacting]
     Active Substance: LISINOPRIL
     Dosage: UNK
     Route: 048
  5. TORASEMIDE [Interacting]
     Active Substance: TORSEMIDE
     Dosage: UNK
     Route: 065
  6. VARICELLA VACCINE (LIVE) [Concomitant]
     Active Substance: VARICELLA-ZOSTER VIRUS STRAIN OKA/MERCK LIVE ANTIGEN
     Indication: PRODUCT USED FOR UNKNOWN INDICATION
     Dosage: UNK
     Route: 065
  7. LISINOPRIL. [Concomitant]
     Active Substance: LISINOPRIL
     Indication: PRODUCT USED FOR UNKNOWN INDICATION
     Dosage: UNK
     Route: 065
  8. GLIPIZIDE. [Interacting]
     Active Substance: GLIPIZIDE
     Indication: PRODUCT USED FOR UNKNOWN INDICATION
     Dosage: UNK
     Route: 065
  9. CLONIDINE. [Concomitant]
     Active Substance: CLONIDINE
     Indication: PRODUCT USED FOR UNKNOWN INDICATION
     Dosage: UNK
     Route: 065
  10. HUMAN HERPESVIRUS 1. [Suspect]
     Active Substance: HUMAN HERPESVIRUS 1
     Indication: IMMUNISATION
     Dosage: UNK
     Route: 065
  11. PREGABALIN. [Interacting]
     Active Substance: PREGABALIN
     Indication: PRODUCT USED FOR UNKNOWN INDICATION
     Dosage: UNK
     Route: 065
  12. WARFARIN SODIUM. [Interacting]
     Active Substance: WARFARIN SODIUM
     Indication: PRODUCT USED FOR UNKNOWN INDICATION
     Dosage: UNKNOWN
     Route: 065
  13. AMLODIPINE [Concomitant]
     Active Substance: AMLODIPINE BESYLATE
     Indication: PRODUCT USED FOR UNKNOWN INDICATION
     Dosage: UNK
     Route: 065
  14. CLONIDINE. [Interacting]
     Active Substance: CLONIDINE
     Indication: PRODUCT USED FOR UNKNOWN INDICATION
     Dosage: UNK
     Route: 065
  15. INFLUENZA VACCINE [Interacting]
     Active Substance: INFLUENZA VIRUS VACCINE
     Indication: IMMUNISATION
     Dosage: UNK
     Route: 065
  16. LISINOPRIL. [Interacting]
     Active Substance: LISINOPRIL
     Indication: PRODUCT USED FOR UNKNOWN INDICATION
     Dosage: UNK, TABLET
     Route: 048
  17. TORASEMIDE [Interacting]
     Active Substance: TORSEMIDE
     Indication: PRODUCT USED FOR UNKNOWN INDICATION
     Dosage: UNK
     Route: 065
  18. AMLODIPINE [Suspect]
     Active Substance: AMLODIPINE BESYLATE
     Indication: PRODUCT USED FOR UNKNOWN INDICATION
     Dosage: UNK
     Route: 065
  19. ROSUVASTATIN. [Interacting]
     Active Substance: ROSUVASTATIN
     Dosage: UNK
     Route: 048
  20. CLONIDINE. [Interacting]
     Active Substance: CLONIDINE
     Dosage: UNK
     Route: 065
  21. PREGABALIN. [Concomitant]
     Active Substance: PREGABALIN
     Indication: PRODUCT USED FOR UNKNOWN INDICATION
     Dosage: UNK
     Route: 065

REACTIONS (10)
  - Dehydration [Unknown]
  - Blood pressure increased [Unknown]
  - Drug interaction [Unknown]
  - Spinal pain [Unknown]
  - Photosensitivity reaction [Unknown]
  - Hypoacusis [Unknown]
  - Haemorrhage intracranial [Unknown]
  - Diplopia [Unknown]
  - Parosmia [Unknown]
  - Headache [Unknown]
